FAERS Safety Report 16638777 (Version 2)
Quarter: 2019Q3

REPORT INFORMATION
  Report Type: Spontaneous
  Country: US (occurrence: US)
  Receive Date: 20190726
  Receipt Date: 20190730
  Transmission Date: 20191004
  Serious: Yes (Life-Threatening, Hospitalization, Other)
  Sender: FDA-Public Use
  Company Number: US-PFIZER INC-2019317083

PATIENT
  Age: 37 Year
  Sex: Female

DRUGS (5)
  1. ADENOSINE. [Concomitant]
     Active Substance: ADENOSINE
     Indication: SUPRAVENTRICULAR TACHYCARDIA
     Dosage: 6 MG, UNK (TWO DOSES)
  2. ADENOSINE. [Concomitant]
     Active Substance: ADENOSINE
     Dosage: 12 MG, UNK (TWO DOSES,TWO MINUTES LATER)
  3. PROPANOLOL HCL [Suspect]
     Active Substance: PROPRANOLOL HYDROCHLORIDE
     Indication: TACHYCARDIA
     Dosage: 60 MG, 3X/DAY
  4. DILTIAZEM. [Concomitant]
     Active Substance: DILTIAZEM
     Dosage: UNK, (BOLUS)
     Route: 040
  5. DILTIAZEM. [Concomitant]
     Active Substance: DILTIAZEM
     Indication: SUPRAVENTRICULAR TACHYCARDIA
     Dosage: UNK, (ON A DRIP)
     Route: 041

REACTIONS (1)
  - Cardiogenic shock [Recovered/Resolved]
